FAERS Safety Report 8965555 (Version 1)
Quarter: 2012Q4

REPORT INFORMATION
  Report Type: Spontaneous
  Country: US (occurrence: None)
  Receive Date: 20121212
  Receipt Date: 20121212
  Transmission Date: 20130627
  Serious: Yes (Disabling, Other)
  Sender: FDA-Public Use
  Company Number: None

PATIENT
  Age: 47 Year
  Sex: Female
  Weight: 99.79 kg

DRUGS (2)
  1. CRESTOR [Suspect]
     Indication: HIGH CHOLESTEROL
     Dosage: 10 mg 1x/daily po
     Route: 048
     Dates: start: 20120801, end: 20121112
  2. CRESTOR [Suspect]
     Indication: LDL INCREASED
     Dosage: 10 mg 1x/daily po
     Route: 048
     Dates: start: 20120801, end: 20121112

REACTIONS (13)
  - Musculoskeletal pain [None]
  - Arthralgia [None]
  - Arthralgia [None]
  - Pain in extremity [None]
  - Muscle spasms [None]
  - Arthralgia [None]
  - Insomnia [None]
  - Weight increased [None]
  - Fatigue [None]
  - Mood swings [None]
  - Anger [None]
  - Myalgia [None]
  - Gait disturbance [None]
